FAERS Safety Report 20908751 (Version 3)
Quarter: 2022Q4

REPORT INFORMATION
  Report Type: Spontaneous
  Country: JP (occurrence: JP)
  Receive Date: 20220603
  Receipt Date: 20221006
  Transmission Date: 20230112
  Serious: Yes (Hospitalization, Other)
  Sender: FDA-Public Use
  Company Number: JP-ONO-2022JP014204

PATIENT
  Age: 67 Year
  Sex: Male

DRUGS (3)
  1. OPDIVO [Suspect]
     Active Substance: NIVOLUMAB
     Indication: Metastatic renal cell carcinoma
     Route: 041
  2. TENELIGLIPTIN HYDROBROMIDE HYDRATE [Concomitant]
     Active Substance: TENELIGLIPTIN HYDROBROMIDE HYDRATE
     Indication: Type 2 diabetes mellitus
     Dosage: 20 MG
     Route: 048
  3. CABOZANTINIB S-MALATE [Concomitant]
     Active Substance: CABOZANTINIB S-MALATE
     Indication: Metastatic renal cell carcinoma
     Route: 065

REACTIONS (6)
  - Diabetes mellitus inadequate control [Unknown]
  - Type 1 diabetes mellitus [Unknown]
  - Diabetic ketoacidosis [Unknown]
  - Pancreatitis [Unknown]
  - Pancreatogenous diabetes [Unknown]
  - Acidosis [Unknown]
